FAERS Safety Report 8520394-5 (Version None)
Quarter: 2012Q3

REPORT INFORMATION
  Report Type: 
  Country: None (occurrence: None)
  Receive Date: 20120712
  Receipt Date: 20120712
  Transmission Date: 20120928
  Serious: No
  Sender: FDA-Public Use
  Company Number: None

PATIENT
  Sex: Male
  Weight: 83.9154 kg

DRUGS (1)
  1. GENTAMICIN [Suspect]
     Indication: URINARY TRACT INFECTION
     Dosage: IM ONCE A DAY SHOT
     Route: 030
     Dates: start: 20120605, end: 20120609

REACTIONS (3)
  - VISUAL IMPAIRMENT [None]
  - CONFUSIONAL STATE [None]
  - HYPOACUSIS [None]
